FAERS Safety Report 24282715 (Version 2)
Quarter: 2024Q3

REPORT INFORMATION
  Report Type: Spontaneous
  Country: HR (occurrence: HR)
  Receive Date: 20240904
  Receipt Date: 20240920
  Transmission Date: 20241016
  Serious: Yes (Life-Threatening, Other)
  Sender: TEVA
  Company Number: None

PATIENT
  Age: 52 Year
  Sex: Female
  Weight: 55 kg

DRUGS (1)
  1. AJOVY [Suspect]
     Active Substance: FREMANEZUMAB-VFRM
     Indication: Headache
     Dosage: FORM STRENGTH: 225 MG / 1.5 ML
     Route: 030
     Dates: start: 2024, end: 20240808

REACTIONS (1)
  - Product primary packaging issue [Unknown]

NARRATIVE: CASE EVENT DATE: 20240808
